FAERS Safety Report 6782534-8 (Version None)
Quarter: 2010Q2

REPORT INFORMATION
  Report Type: 
  Country: None (occurrence: None)
  Receive Date: 20100621
  Receipt Date: 20100621
  Transmission Date: 20101027
  Serious: Yes (Life-Threatening)
  Sender: FDA-Public Use
  Company Number: IT-WYE-G05660410

PATIENT
  Sex: Male
  Weight: 95 kg

DRUGS (2)
  1. TORISEL [Suspect]
     Indication: ACUTE MYELOID LEUKAEMIA
     Dosage: 25MG (CUMULATIVE DOSE 75MG)
     Route: 042
     Dates: start: 20100203, end: 20100217
  2. EVOLTRA [Suspect]
     Indication: ACUTE MYELOID LEUKAEMIA
     Dosage: 40MG (CUMULATIVE DOSE 200MG)
     Route: 042
     Dates: start: 20100203, end: 20100207

REACTIONS (3)
  - PNEUMONIA [None]
  - RESPIRATORY ACIDOSIS [None]
  - RESPIRATORY FAILURE [None]
